FAERS Safety Report 7120164-9 (Version None)
Quarter: 2010Q4

REPORT INFORMATION
  Report Type: 
  Country: None (occurrence: None)
  Receive Date: 20101123
  Receipt Date: 20101116
  Transmission Date: 20110411
  Serious: Yes (Other)
  Sender: FDA-Public Use
  Company Number: US-PFIZER INC-2010151623

PATIENT
  Sex: Male

DRUGS (2)
  1. LYRICA [Suspect]
  2. ZOLOFT [Suspect]

REACTIONS (1)
  - GASTRIC DISORDER [None]
